FAERS Safety Report 4442116-X (Version None)
Quarter: 2004Q3

REPORT INFORMATION
  Report Type: 
  Country: None (occurrence: None)
  Receive Date: 20040903
  Receipt Date: 20040713
  Transmission Date: 20050211
  Serious: No
  Sender: FDA-Public Use
  Company Number: 2004UW13870

PATIENT
  Age: 77 Year
  Sex: Female
  Weight: 582.8722 kg

DRUGS (6)
  1. CRESTOR [Suspect]
     Indication: HYPERCHOLESTEROLAEMIA
     Dosage: 10 MG QD PO
     Route: 048
     Dates: start: 20040305, end: 20040311
  2. CARDIOLITE [Suspect]
  3. ADLEMOSINE [Suspect]
  4. PLAVIX [Concomitant]
  5. ASPIRIN [Concomitant]
  6. XANAX [Concomitant]

REACTIONS (7)
  - BLISTER [None]
  - DIARRHOEA [None]
  - DRUG INTERACTION [None]
  - HYPERSENSITIVITY [None]
  - NAUSEA [None]
  - STOMACH DISCOMFORT [None]
  - VOMITING PROJECTILE [None]
